FAERS Safety Report 7725370-8 (Version None)
Quarter: 2011Q3

REPORT INFORMATION
  Report Type: 
  Country: None (occurrence: None)
  Receive Date: 20110829
  Receipt Date: 20110812
  Transmission Date: 20111222
  Serious: Yes (Hospitalization)
  Sender: FDA-Public Use
  Company Number: IPC201108-003132

PATIENT
  Age: 47 Year
  Sex: Female

DRUGS (4)
  1. DIAZEPAM [Suspect]
     Dosage: 250 MG
  2. PROPRANOLOL HYDROCHLORIDE [Suspect]
     Dosage: 40 MG THREE TIMES DAILY
  3. ZIPRASIDONE HYDROCHLORIDE [Suspect]
     Dosage: 1.2 GRAM
  4. VENLAFAXINE HYDROCHLORIDE [Suspect]
     Dosage: 225 MG DAILY

REACTIONS (4)
  - SOMNOLENCE [None]
  - ELECTROCARDIOGRAM QT PROLONGED [None]
  - MULTIPLE DRUG OVERDOSE [None]
  - BRADYCARDIA [None]
